FAERS Safety Report 6103129-5 (Version None)
Quarter: 2009Q1

REPORT INFORMATION
  Report Type: 
  Country: None (occurrence: None)
  Receive Date: 20090305
  Receipt Date: 20090225
  Transmission Date: 20090719
  Serious: Yes (Life-Threatening, Hospitalization)
  Sender: FDA-Public Use
  Company Number: FR-BAXTER-2009BH003326

PATIENT
  Age: 17 Month
  Sex: Female

DRUGS (3)
  1. ENDOXAN BAXTER [Suspect]
     Indication: NEUROBLASTOMA
     Route: 042
     Dates: start: 20090209, end: 20090210
  2. VEPESID [Suspect]
     Indication: NEUROBLASTOMA
     Route: 042
     Dates: start: 20090209, end: 20090210
  3. ONCOVIN [Suspect]
     Indication: NEUROBLASTOMA
     Route: 042
     Dates: start: 20090209, end: 20090210

REACTIONS (5)
  - ACUTE RESPIRATORY DISTRESS SYNDROME [None]
  - FEBRILE BONE MARROW APLASIA [None]
  - INTERSTITIAL LUNG DISEASE [None]
  - PLEURAL EFFUSION [None]
  - PYELONEPHRITIS [None]
